FAERS Safety Report 15664000 (Version 1)
Quarter: 2018Q4

REPORT INFORMATION
  Report Type: Spontaneous
  Country: BR (occurrence: BR)
  Receive Date: 20181128
  Receipt Date: 20181128
  Transmission Date: 20190205
  Serious: Yes (Other)
  Sender: FDA-Public Use
  Company Number: BR-HQ SPECIALTY-BR-2018INT000240

PATIENT

DRUGS (4)
  1. CARBOPLATIN. [Suspect]
     Active Substance: CARBOPLATIN
     Indication: PRODUCT USED FOR UNKNOWN INDICATION
     Dosage: (AUC5, THE 26TH AND 30TH WEEKS)
     Route: 064
  2. PACLITAXEL. [Suspect]
     Active Substance: PACLITAXEL
     Indication: PRODUCT USED FOR UNKNOWN INDICATION
     Dosage: 175/M2 (26TH AND 30TH WEEKS)
     Route: 064
  3. PACLITAXEL. [Suspect]
     Active Substance: PACLITAXEL
     Dosage: (FOR 4 WEEKS)
     Route: 063
  4. CARBOPLATIN. [Suspect]
     Active Substance: CARBOPLATIN
     Dosage: (FOR 4 WEEKS)
     Route: 063

REACTIONS (3)
  - Deafness bilateral [Unknown]
  - Foetal exposure during pregnancy [Unknown]
  - Maternal exposure during breast feeding [Unknown]
